FAERS Safety Report 14220893 (Version 4)
Quarter: 2017Q4

REPORT INFORMATION
  Report Type: Spontaneous
  Country: JP (occurrence: JP)
  Receive Date: 20171124
  Receipt Date: 20171229
  Transmission Date: 20180321
  Serious: Yes (Death, Other)
  Sender: FDA-Public Use
  Company Number: JP-ALLERGAN-1767243US

PATIENT
  Age: 50 Year
  Sex: Male

DRUGS (2)
  1. BOTOX [Suspect]
     Active Substance: ONABOTULINUMTOXINA
     Indication: MUSCLE SPASTICITY
     Dosage: 300 UNITS, SINGLE
     Route: 030
     Dates: start: 20171030, end: 20171030
  2. BOTOX [Suspect]
     Active Substance: ONABOTULINUMTOXINA
     Dosage: UNK, SINGLE
     Route: 030

REACTIONS (7)
  - Septic shock [Fatal]
  - Oxygen saturation decreased [Recovered/Resolved]
  - Cardio-respiratory arrest [Fatal]
  - Cardiac arrest [Fatal]
  - White blood cell count increased [Unknown]
  - Bacterial infection [Unknown]
  - Infection masked [Fatal]

NARRATIVE: CASE EVENT DATE: 20171103
